FAERS Safety Report 7209807-9 (Version None)
Quarter: 2011Q1

REPORT INFORMATION
  Report Type: 
  Country: None (occurrence: None)
  Receive Date: 20110104
  Receipt Date: 20101223
  Transmission Date: 20110831
  Serious: Yes (Hospitalization, Other)
  Sender: FDA-Public Use
  Company Number: JP-MERCK-1012USA03103

PATIENT
  Age: 44 Year
  Sex: Male
  Weight: 70 kg

DRUGS (9)
  1. PERICIAZINE [Concomitant]
     Route: 048
  2. BIPERIDEN [Concomitant]
     Route: 048
  3. FLUNITRAZEPAM [Concomitant]
     Route: 048
  4. AMLODIPINE [Concomitant]
     Route: 048
  5. CARBAMAZEPINE [Concomitant]
     Route: 048
  6. CLONAZEPAM [Concomitant]
     Route: 048
  7. MIANSERIN HYDROCHLORIDE [Concomitant]
     Route: 048
  8. VEGETAMIN B [Concomitant]
     Route: 048
  9. PEPCID [Suspect]
     Route: 048

REACTIONS (4)
  - RESTLESS LEGS SYNDROME [None]
  - SLEEP-RELATED EATING DISORDER [None]
  - DELIRIUM [None]
  - DIABETES MELLITUS [None]
